FAERS Safety Report 7180101-8 (Version None)
Quarter: 2010Q4

REPORT INFORMATION
  Report Type: 
  Country: None (occurrence: None)
  Receive Date: 20101221
  Receipt Date: 20101218
  Transmission Date: 20110411
  Serious: Yes (Death, Hospitalization, Other)
  Sender: FDA-Public Use
  Company Number: PHHY2010US86079

PATIENT
  Age: 23 Year
  Sex: Female

DRUGS (5)
  1. VALPROIC ACID (NGX) [Suspect]
     Indication: CONVULSION
     Dosage: 250MG AND 125 MG DAILY
  2. LAMOTRIGINE [Concomitant]
  3. LEVETIRACETAM [Concomitant]
  4. AMIODARONE HCL [Concomitant]
  5. FENTANYL-100 [Concomitant]
     Dosage: UNK

REACTIONS (16)
  - ACUTE HEPATIC FAILURE [None]
  - CARDIAC ARREST [None]
  - CARDIAC FAILURE ACUTE [None]
  - DISEASE PROGRESSION [None]
  - ENDOTRACHEAL INTUBATION [None]
  - HEPATIC ENZYME INCREASED [None]
  - HYPOTENSION [None]
  - INTRACRANIAL PRESSURE INCREASED [None]
  - LIVER TRANSPLANT [None]
  - MENINGITIS [None]
  - MENTAL STATUS CHANGES [None]
  - MYOCLONUS [None]
  - PNEUMONIA [None]
  - RENAL FAILURE ACUTE [None]
  - RESUSCITATION [None]
  - TREMOR [None]
